FAERS Safety Report 13449426 (Version 2)
Quarter: 2018Q4

REPORT INFORMATION
  Report Type: Report from Study
  Country: US (occurrence: US)
  Receive Date: 20170417
  Receipt Date: 20181123
  Transmission Date: 20190204
  Serious: Yes (Other)
  Sender: FDA-Public Use
  Company Number: US-ALLERGAN-1714631US

PATIENT
  Age: 65 Year
  Sex: Female

DRUGS (1)
  1. CYCLOSPORINE 0.5MG/ML SOL (9054XMD) [Suspect]
     Active Substance: CYCLOSPORINE
     Indication: DRY EYE
     Dosage: 2 GTT, BID
     Route: 047

REACTIONS (3)
  - Fatigue [Not Recovered/Not Resolved]
  - Dry eye [Not Recovered/Not Resolved]
  - Lymphoma [Not Recovered/Not Resolved]

NARRATIVE: CASE EVENT DATE: 201702
